FAERS Safety Report 8951145 (Version 1)
Quarter: 2012Q4

REPORT INFORMATION
  Report Type: 
  Country: US (occurrence: US)
  Receive Date: 20121207
  Receipt Date: 20121207
  Transmission Date: 20130627
  Serious: Yes (Other)
  Sender: FDA-Public Use
  Company Number: US-ENDO PHARMACEUTICALS INC.-FORT20120251

PATIENT
  Sex: Male
  Weight: 116.22 kg

DRUGS (8)
  1. FORTESTA [Suspect]
     Indication: BLOOD TESTOSTERONE DECREASED
     Dosage: UNKNOWN
     Route: 061
     Dates: start: 201203, end: 2012
  2. FORTESTA [Suspect]
     Dosage: UNKNOWN
     Route: 061
     Dates: start: 2012, end: 201208
  3. PERCOCET [Concomitant]
     Indication: PRODUCT USED FOR UNKNOWN INDICATION
     Dosage: UNKNOWN
     Route: 048
  4. METFORMIN HYDROCHLORIDE TABLETS [Concomitant]
     Indication: HYPERGLYCAEMIA
     Dosage: UNKNOWN
     Route: 065
  5. CELEBREX [Concomitant]
     Indication: PRODUCT USED FOR UNKNOWN INDICATION
     Dosage: UNKNOWN
     Route: 065
  6. EXFORGE [Concomitant]
     Indication: HYPERTENSION
     Dosage: 5/320 MG
     Route: 065
  7. MULTIVITAMINS [Concomitant]
     Indication: PRODUCT USED FOR UNKNOWN INDICATION
     Dosage: UNKNOWN
     Route: 065
  8. VITAMIN C [Concomitant]
     Indication: PRODUCT USED FOR UNKNOWN INDICATION
     Dosage: UNKNOWN
     Route: 065

REACTIONS (3)
  - Muscle rupture [Unknown]
  - Tendon rupture [Unknown]
  - Drug administered at inappropriate site [Recovered/Resolved]
